FAERS Safety Report 9165565 (Version 1)
Quarter: 2013Q1

REPORT INFORMATION
  Report Type: Spontaneous
  Country: ES (occurrence: ES)
  Receive Date: 20130315
  Receipt Date: 20130315
  Transmission Date: 20140127
  Serious: Yes (Other)
  Sender: FDA-Public Use
  Company Number: ES-SANOFI-AVENTIS-2013SA023597

PATIENT
  Age: 70 Year
  Sex: Female

DRUGS (5)
  1. CLEXANE [Suspect]
     Indication: ATRIAL FIBRILLATION
     Dosage: 40MG /12H
     Route: 058
     Dates: start: 20121015, end: 20121028
  2. SEPTRIN [Suspect]
     Indication: PNEUMONIA
     Dosage: 1 UNIDAD CADA 8 HORAS, STRENGTH: 80 MG/ 400 MG
     Route: 048
     Dates: start: 20121023, end: 20121028
  3. MEROPENEM [Suspect]
     Indication: PRODUCT USED FOR UNKNOWN INDICATION
     Dosage: 1GRAMO CADA 8 HORAS
     Route: 042
     Dates: start: 20121015, end: 20121028
  4. ESOMEPRAZOL [Suspect]
     Indication: PROPHYLAXIS AGAINST GASTROINTESTINAL ULCER
     Dosage: 20MG DIA
     Route: 048
     Dates: start: 20121015, end: 20121028
  5. SOLTRIM [Concomitant]
     Indication: PNEUMONIA
     Dosage: 2 UNIDADES CADA 8 HORAS, STRENGTH: 5 VIALS PLUS 5 VIALS
     Route: 042
     Dates: start: 20121015, end: 20121023

REACTIONS (2)
  - Hepatitis cholestatic [Recovered/Resolved]
  - Off label use [Unknown]
